FAERS Safety Report 8895193 (Version 1)
Quarter: 2012Q4

REPORT INFORMATION
  Report Type: 
  Country: US (occurrence: US)
  Receive Date: 20121107
  Receipt Date: 20121107
  Transmission Date: 20130627
  Serious: No
  Sender: FDA-Public Use
  Company Number: US-AMGEN-USASP2011048848

PATIENT
  Age: 73 Year
  Sex: Female
  Weight: 61.22 kg

DRUGS (9)
  1. ENBREL [Suspect]
     Indication: PRODUCT USED FOR UNKNOWN INDICATION
     Dosage: 50 mg, qwk
     Route: 058
  2. SYNTHROID [Concomitant]
     Dosage: 50 mug, UNK
  3. WELLBUTRIN                         /00700502/ [Concomitant]
     Dosage: 75 mg, UNK
  4. ASPIRIN [Concomitant]
     Dosage: 81 mg, UNK
  5. CELEXA                             /00582602/ [Concomitant]
     Dosage: 10 mg, UNK
  6. ADVIL                              /00044201/ [Concomitant]
     Dosage: 200 mg, UNK
  7. SPIRIVA [Concomitant]
  8. VITAMIN B12                        /00056201/ [Concomitant]
     Dosage: 500 mug, UNK
  9. ONE DAILY                          /01824901/ [Concomitant]

REACTIONS (1)
  - Sinusitis [Unknown]
